FAERS Safety Report 10027343 (Version 3)
Quarter: 2014Q1

REPORT INFORMATION
  Report Type: Report from Study
  Country: FR (occurrence: FR)
  Receive Date: 20140321
  Receipt Date: 20140326
  Transmission Date: 20141002
  Serious: Yes (Hospitalization)
  Sender: FDA-Public Use
  Company Number: FR-CELGENEUS-056-50794-14021810

PATIENT
  Age: 78 Year
  Sex: Female

DRUGS (11)
  1. VIDAZA [Suspect]
     Indication: MYELODYSPLASTIC SYNDROME
     Dosage: 120 MILLIGRAM
     Route: 058
     Dates: start: 20140120, end: 20140126
  2. VIDAZA [Suspect]
     Dosage: 120 MILLIGRAM
     Route: 058
     Dates: end: 20140217
  3. VIDAZA [Suspect]
     Route: 058
     Dates: start: 20131028
  4. VIDAZA [Suspect]
     Route: 058
     Dates: start: 20140225
  5. IDARUBICINE [Suspect]
     Indication: PRODUCT USED FOR UNKNOWN INDICATION
     Dosage: 16 MILLIGRAM
     Route: 058
     Dates: start: 20140126, end: 20140126
  6. IDARUBICINE [Suspect]
     Dosage: 16 MILLIGRAM
     Route: 058
     Dates: end: 20140217
  7. IDARUBICINE [Suspect]
     Route: 058
     Dates: start: 20131028
  8. IDARUBICINE [Suspect]
     Route: 058
     Dates: start: 20140304
  9. NOXAFIL [Concomitant]
     Indication: PRODUCT USED FOR UNKNOWN INDICATION
     Route: 065
  10. TAVANIC [Concomitant]
     Indication: PRODUCT USED FOR UNKNOWN INDICATION
     Route: 065
  11. MOVICOL [Concomitant]
     Indication: PRODUCT USED FOR UNKNOWN INDICATION
     Route: 065

REACTIONS (5)
  - Lung disorder [Recovered/Resolved]
  - Febrile bone marrow aplasia [Not Recovered/Not Resolved]
  - Oral herpes [Recovered/Resolved]
  - Febrile neutropenia [Recovered/Resolved]
  - Lymphadenopathy [Recovered/Resolved]
